FAERS Safety Report 7309352-6 (Version None)
Quarter: 2011Q1

REPORT INFORMATION
  Report Type: 
  Country: None (occurrence: None)
  Receive Date: 20110211
  Receipt Date: 20110202
  Transmission Date: 20110831
  Serious: Yes (Other)
  Sender: FDA-Public Use
  Company Number: DKLU1068132

PATIENT
  Age: 3 Year
  Sex: Male

DRUGS (2)
  1. SABRIL [Suspect]
     Indication: INFANTILE SPASMS
     Dosage: 750, 875 MG MILLIGRAM(S), 2 IN 1 D, ORAL
     Route: 048
     Dates: start: 20091207, end: 20091230
  2. SABRIL [Suspect]
     Indication: INFANTILE SPASMS
     Dosage: 750, 875 MG MILLIGRAM(S), 2 IN 1 D, ORAL
     Route: 048
     Dates: start: 20100201

REACTIONS (2)
  - CONVULSION [None]
  - FUNDOSCOPY ABNORMAL [None]
